FAERS Safety Report 23997251 (Version 2)
Quarter: 2024Q2

REPORT INFORMATION
  Report Type: Report from Study
  Country: US (occurrence: US)
  Receive Date: 20240621
  Receipt Date: 20240627
  Transmission Date: 20240716
  Serious: Yes (Other)
  Sender: FDA-Public Use
  Company Number: US-ABBVIE-5806613

PATIENT
  Age: 70 Year
  Sex: Female

DRUGS (2)
  1. SKYRIZI [Suspect]
     Active Substance: RISANKIZUMAB-RZAA
     Indication: Psoriasis
     Route: 058
  2. SKYRIZI [Suspect]
     Active Substance: RISANKIZUMAB-RZAA
     Indication: Psoriasis
     Route: 058

REACTIONS (10)
  - Myocardial infarction [Unknown]
  - Urinary tract infection [Unknown]
  - Cystitis noninfective [Unknown]
  - Cystitis haemorrhagic [Unknown]
  - Helicobacter gastritis [Unknown]
  - Dyspnoea [Unknown]
  - Malaise [Unknown]
  - Urinary tract infection [Unknown]
  - White blood cells urine positive [Unknown]
  - Illness [Unknown]

NARRATIVE: CASE EVENT DATE: 20240201
